FAERS Safety Report 23213689 (Version 1)
Quarter: 2023Q4

REPORT INFORMATION
  Report Type: Spontaneous
  Country: US (occurrence: US)
  Receive Date: 20231121
  Receipt Date: 20231121
  Transmission Date: 20240110
  Serious: No
  Sender: FDA-Public Use
  Company Number: US-TEVA-2023-US-2942967

PATIENT
  Sex: Female

DRUGS (2)
  1. KETOCONAZOLE [Suspect]
     Active Substance: KETOCONAZOLE
     Indication: Psoriasis
     Dosage: KETOCONAZOLE 2PERCENT TOPICAL CREAM MIX 50:50 WITH TRIAMCINOLONE ACETONIDE 0.025 PERCENT CREAM
     Route: 061
  2. TRIAMCINOLONE ACETONIDE [Suspect]
     Active Substance: TRIAMCINOLONE ACETONIDE
     Indication: Psoriasis
     Dosage: KETOCONAZOLE 2PERCENT TOPICAL CREAM MIX 50:50 WITH TRIAMCINOLONE ACETONIDE 0.025 PERCENT CREAM
     Route: 061

REACTIONS (1)
  - Drug ineffective [Unknown]
